FAERS Safety Report 21733677 (Version 1)
Quarter: 2022Q4

REPORT INFORMATION
  Report Type: Spontaneous
  Country: US (occurrence: None)
  Receive Date: 20221214
  Receipt Date: 20221214
  Transmission Date: 20230112
  Serious: No
  Sender: FDA-Public Use
  Company Number: None

PATIENT
  Sex: Male

DRUGS (1)
  1. HUMIRA [Suspect]
     Active Substance: ADALIMUMAB
     Indication: Psoriasis
     Dosage: 40MG EVERY OTHER WEEK UNDER THE SKIN?
     Route: 058
     Dates: start: 202201

REACTIONS (3)
  - Device defective [None]
  - Device mechanical issue [None]
  - Drug dose omission by device [None]
